FAERS Safety Report 12981789 (Version 1)
Quarter: 2016Q4

REPORT INFORMATION
  Report Type: Spontaneous
  Country: US (occurrence: US)
  Receive Date: 20161129
  Receipt Date: 20161129
  Transmission Date: 20170207
  Serious: Yes (Other)
  Sender: FDA-Public Use
  Company Number: US-CLINIGEN GROUP PLC/ CLINIGEN HEALTHCARE LTD-E2B_00004337

PATIENT
  Age: 34 Year
  Sex: Male

DRUGS (5)
  1. NORMAL SALINE [Concomitant]
     Active Substance: SODIUM CHLORIDE
     Indication: FLUID REPLACEMENT
     Route: 042
     Dates: start: 19940405
  2. FOSCAVIR [Suspect]
     Active Substance: FOSCARNET SODIUM
     Dosage: DOSE: 3025 MG TOTAL DAILY DOSE: 6050 MG
     Route: 042
     Dates: start: 19940418, end: 19940419
  3. FOSCAVIR [Suspect]
     Active Substance: FOSCARNET SODIUM
     Dosage: DOSE: 5000 MG TOTAL DAILY DOSE: 5000 MG
     Route: 042
     Dates: start: 19940420, end: 19940502
  4. PENTAMIDINE [Concomitant]
     Active Substance: PENTAMIDINE
     Route: 042
  5. FOSCAVIR [Suspect]
     Active Substance: FOSCARNET SODIUM
     Indication: HERPES SIMPLEX
     Dosage: DOSE: 3025 MG TOTAL DAILY DOSE: 9075 MG
     Route: 042
     Dates: start: 19940405, end: 19940417

REACTIONS (1)
  - Diabetes mellitus [Not Recovered/Not Resolved]

NARRATIVE: CASE EVENT DATE: 19940405
